FAERS Safety Report 11540206 (Version 1)
Quarter: 2015Q3

REPORT INFORMATION
  Report Type: Spontaneous
  Country: US (occurrence: US)
  Receive Date: 20150923
  Receipt Date: 20150923
  Transmission Date: 20151125
  Serious: No
  Sender: FDA-Public Use
  Company Number: US-PFIZER INC-2014035739

PATIENT
  Age: 80 Year
  Sex: Female

DRUGS (16)
  1. LORAZEPAM. [Concomitant]
     Active Substance: LORAZEPAM
     Indication: NERVE INJURY
     Dosage: 1 MG, 2X/DAY
  2. POTASSIUM [Concomitant]
     Active Substance: POTASSIUM
     Dosage: 10 ?G, UNK
  3. LEVOTHYROXINE. [Concomitant]
     Active Substance: LEVOTHYROXINE
     Indication: THYROID DISORDER
     Dosage: 137 MG, UNK
  4. MELOXICAM. [Concomitant]
     Active Substance: MELOXICAM
     Indication: ARTHRITIS
     Dosage: 7.5 MG, UNK
  5. TEMAZEPAM. [Concomitant]
     Active Substance: TEMAZEPAM
     Indication: SLEEP DISORDER
     Dosage: 30 MG, UNK
  6. HYDROCODONE [Concomitant]
     Active Substance: HYDROCODONE
     Indication: PAIN
     Dosage: 5000 MG, EVERY 4 HRS
  7. AMITRIPTYLINE [Concomitant]
     Active Substance: AMITRIPTYLINE
     Indication: NEUROPATHY PERIPHERAL
     Dosage: 10 MG, UNK
  8. LYRICA [Suspect]
     Active Substance: PREGABALIN
     Indication: NEUROPATHY PERIPHERAL
     Dosage: 50 MG, 3X/DAY
     Route: 048
  9. PANTOPRAZOLE [Concomitant]
     Active Substance: PANTOPRAZOLE SODIUM
     Indication: GASTROOESOPHAGEAL REFLUX DISEASE
     Dosage: 40 MG, UNK
  10. LEVEMIR [Concomitant]
     Active Substance: INSULIN DETEMIR
     Indication: BLOOD INSULIN
     Dosage: 75 IU, 1X/DAY (75 UN BEDTIME)
  11. NIFEDIAC CC [Concomitant]
     Active Substance: NIFEDIPINE
     Indication: BLOOD PRESSURE MEASUREMENT
     Dosage: 60 MG, UNK
  12. ANASTROZOLE. [Concomitant]
     Active Substance: ANASTROZOLE
     Indication: CHEMOTHERAPY
     Dosage: 1 MG, UNK
  13. CALCIUM [Concomitant]
     Active Substance: CALCIUM
     Dosage: 500 MG, UNK
  14. NOVOLOG [Concomitant]
     Active Substance: INSULIN ASPART
     Indication: BLOOD INSULIN
     Dosage: 30 UNITS BREAKFAST, 25 UNITS LUNCH, 30 N DINNER
  15. WARFARIN [Concomitant]
     Active Substance: WARFARIN
     Indication: BLOOD DISORDER
     Dosage: 5 MG, UNK
  16. NITROFURANTOIN. [Concomitant]
     Active Substance: NITROFURANTOIN
     Indication: URINARY TRACT INFECTION
     Dosage: 50 MG, UNK

REACTIONS (2)
  - Pain [Unknown]
  - Pain in extremity [Unknown]
